FAERS Safety Report 23334443 (Version 2)
Quarter: 2023Q4

REPORT INFORMATION
  Report Type: Report from Study
  Country: US (occurrence: US)
  Receive Date: 20231224
  Receipt Date: 20231231
  Transmission Date: 20240109
  Serious: Yes (Other)
  Sender: FDA-Public Use
  Company Number: US-JNJFOC-20231138330

PATIENT
  Age: 69 Year
  Sex: Female
  Weight: 63.56 kg

DRUGS (3)
  1. STELARA [Suspect]
     Active Substance: USTEKINUMAB
     Indication: Crohn^s disease
     Route: 040
     Dates: start: 20231026
  2. STELARA [Suspect]
     Active Substance: USTEKINUMAB
     Route: 058
  3. OLMESARTAN [Concomitant]
     Active Substance: OLMESARTAN

REACTIONS (13)
  - Hypertension [Not Recovered/Not Resolved]
  - Immunodeficiency [Unknown]
  - Intestinal stenosis [Unknown]
  - Back pain [Not Recovered/Not Resolved]
  - Anxiety [Not Recovered/Not Resolved]
  - Infusion related reaction [Not Recovered/Not Resolved]
  - Abdominal distension [Unknown]
  - Weight increased [Unknown]
  - Rhinorrhoea [Unknown]
  - Headache [Unknown]
  - Diarrhoea [Not Recovered/Not Resolved]
  - Herpes zoster [Unknown]
  - Product dose omission issue [Unknown]

NARRATIVE: CASE EVENT DATE: 20231026
